FAERS Safety Report 16450374 (Version 2)
Quarter: 2020Q1

REPORT INFORMATION
  Report Type: Report from Study
  Country: JP (occurrence: JP)
  Receive Date: 20190619
  Receipt Date: 20200303
  Transmission Date: 20200409
  Serious: Yes (Hospitalization, Other)
  Sender: FDA-Public Use
  Company Number: JP-GILEAD-2019-0413528

PATIENT
  Age: 44 Year
  Sex: Male

DRUGS (7)
  1. MUCOSTA [Concomitant]
     Active Substance: REBAMIPIDE
     Dosage: 300 MG
     Dates: end: 201901
  2. TIVICAY [Suspect]
     Active Substance: DOLUTEGRAVIR SODIUM
     Indication: PRODUCT USED FOR UNKNOWN INDICATION
     Dosage: UNK
     Route: 048
  3. URSO [Concomitant]
     Active Substance: URSODIOL
     Dosage: 300 MG
     Dates: end: 201901
  4. EMTRICITABINE/TENOFOVIR ALAFENAMIDE [Suspect]
     Active Substance: EMTRICITABINE\TENOFOVIR
     Indication: PRODUCT USED FOR UNKNOWN INDICATION
     Dosage: 200MG/25MG
     Route: 065
     Dates: start: 20180725, end: 201901
  5. MAGNESIUM OXIDE. [Concomitant]
     Active Substance: MAGNESIUM OXIDE
     Dosage: 990 MG
     Dates: end: 201901
  6. SPIRONOLACTONE. [Concomitant]
     Active Substance: SPIRONOLACTONE
     Dosage: 25 MG
     Dates: end: 201901
  7. LIVACT [AMINO ACIDS NOS] [Concomitant]
     Dosage: 3 DOSAGE FORM
     Dates: end: 201901

REACTIONS (1)
  - Pancytopenia [Not Recovered/Not Resolved]

NARRATIVE: CASE EVENT DATE: 20190121
